FAERS Safety Report 8108925-0 (Version None)
Quarter: 2012Q1

REPORT INFORMATION
  Report Type: 
  Country: None (occurrence: None)
  Receive Date: 20120202
  Receipt Date: 20120126
  Transmission Date: 20120608
  Serious: Yes (Other)
  Sender: FDA-Public Use
  Company Number: GB-GLAXOSMITHKLINE-B0777581A

PATIENT
  Age: 31 Year
  Sex: Female
  Weight: 60 kg

DRUGS (4)
  1. CLOBETASOL PROPIONATE [Suspect]
     Dates: start: 20120118
  2. DIPROBASE [Concomitant]
     Dates: start: 20111205, end: 20120102
  3. MOMETASONE FUROATE [Concomitant]
     Dates: start: 20120118
  4. BETAMETHASONE VALERATE [Concomitant]
     Dates: start: 20111205, end: 20111212

REACTIONS (2)
  - APPLICATION SITE SWELLING [None]
  - HYPERSENSITIVITY [None]
